FAERS Safety Report 25586240 (Version 2)
Quarter: 2025Q3

REPORT INFORMATION
  Report Type: Report from Study
  Country: US (occurrence: US)
  Receive Date: 20250721
  Receipt Date: 20250804
  Transmission Date: 20251020
  Serious: Yes (Other)
  Sender: UPSHER SMITH LABORATORIES
  Company Number: US-UPSHER-SMITH LABORATORIES, LLC-20250700985

PATIENT
  Sex: Female

DRUGS (8)
  1. ISOTRETINOIN [Suspect]
     Active Substance: ISOTRETINOIN
     Indication: Acne
     Route: 065
     Dates: start: 20250113, end: 20250709
  2. ISOTRETINOIN [Suspect]
     Active Substance: ISOTRETINOIN
     Route: 065
  3. MYORISAN [Concomitant]
     Active Substance: ISOTRETINOIN
     Indication: Product used for unknown indication
     Route: 065
  4. MYORISAN [Concomitant]
     Active Substance: ISOTRETINOIN
     Route: 065
  5. CLARAVIS [Concomitant]
     Active Substance: ISOTRETINOIN
     Indication: Product used for unknown indication
     Route: 065
  6. CLARAVIS [Concomitant]
     Active Substance: ISOTRETINOIN
     Route: 065
  7. CLARAVIS [Concomitant]
     Active Substance: ISOTRETINOIN
  8. CLARAVIS [Concomitant]
     Active Substance: ISOTRETINOIN

REACTIONS (1)
  - Anxiety [Unknown]

NARRATIVE: CASE EVENT DATE: 20250101
